FAERS Safety Report 25417123 (Version 3)
Quarter: 2025Q4

REPORT INFORMATION
  Report Type: Report from Study
  Country: US (occurrence: None)
  Receive Date: 20250610
  Receipt Date: 20251222
  Transmission Date: 20260117
  Serious: Yes (Hospitalization, Other)
  Sender: UCB
  Company Number: US-UCBSA-2025029397

PATIENT
  Age: 3 Year
  Weight: 19.9 kg

DRUGS (2)
  1. FENFLURAMINE [Suspect]
     Active Substance: FENFLURAMINE
     Indication: Lennox-Gastaut syndrome
     Dosage: 3.1 MILLILITER, 2X/DAY (BID)
  2. Xcorpi [Concomitant]
     Indication: Product used for unknown indication
     Dosage: 15 MG

REACTIONS (3)
  - Seizure [Recovering/Resolving]
  - Generalised tonic-clonic seizure [Unknown]
  - Drug resistance [Unknown]
